FAERS Safety Report 7339102-9 (Version None)
Quarter: 2011Q1

REPORT INFORMATION
  Report Type: 
  Country: None (occurrence: None)
  Receive Date: 20110308
  Receipt Date: 20110303
  Transmission Date: 20110831
  Serious: No
  Sender: FDA-Public Use
  Company Number: US-TEVA-269887USA

PATIENT
  Age: 29 Year
  Sex: Female
  Weight: 59.02 kg

DRUGS (2)
  1. PLAN B ONE-STEP [Suspect]
     Indication: POST COITAL CONTRACEPTION
     Route: 048
     Dates: start: 20110221, end: 20110221
  2. UNKNOWN THYROID MEDICATION [Concomitant]
     Indication: THYROID DISORDER

REACTIONS (2)
  - MENSTRUATION IRREGULAR [None]
  - HEADACHE [None]
